FAERS Safety Report 21463207 (Version 2)
Quarter: 2022Q4

REPORT INFORMATION
  Report Type: Report from Study
  Country: JP (occurrence: JP)
  Receive Date: 20221017
  Receipt Date: 20221017
  Transmission Date: 20230113
  Serious: Yes (Death, Life-Threatening, Hospitalization)
  Sender: FDA-Public Use
  Company Number: JP-JNJFOC-20220123018

PATIENT
  Age: 74 Year
  Sex: Male
  Weight: 76.6 kg

DRUGS (19)
  1. DARATUMUMAB [Suspect]
     Active Substance: DARATUMUMAB
     Indication: Plasma cell myeloma
     Dosage: LAST DOSE PRIOR TO EVENT ON 12-JAN-2022 (C7 D16)
     Route: 058
     Dates: start: 20210629
  2. PRAVASTATIN SODIUM [Concomitant]
     Active Substance: PRAVASTATIN SODIUM
     Indication: Hyperlipidaemia
     Route: 048
     Dates: start: 20120101
  3. ACYCLOVIR [Concomitant]
     Active Substance: ACYCLOVIR
     Indication: Prophylaxis
     Route: 048
     Dates: start: 20181015
  4. SULFAMETHOXAZOLE\TRIMETHOPRIM [Concomitant]
     Active Substance: SULFAMETHOXAZOLE\TRIMETHOPRIM
     Indication: Prophylaxis
     Dosage: 400/80
     Route: 048
     Dates: start: 20181015
  5. ICOSAPENT ETHYL [Concomitant]
     Active Substance: ICOSAPENT ETHYL
     Indication: Hepatic steatosis
     Route: 048
     Dates: start: 20191107
  6. FEBUXOSTAT [Concomitant]
     Active Substance: FEBUXOSTAT
     Indication: Hyperuricaemia
     Route: 048
     Dates: start: 20191219
  7. FEXOFENADINE HYDROCHLORIDE [Concomitant]
     Active Substance: FEXOFENADINE HYDROCHLORIDE
     Indication: Seasonal allergy
     Route: 048
     Dates: start: 20191226
  8. LUBIPROSTONE [Concomitant]
     Active Substance: LUBIPROSTONE
     Indication: Constipation
     Route: 048
     Dates: start: 20200116
  9. SILODOSIN [Concomitant]
     Active Substance: SILODOSIN
     Indication: Benign prostatic hyperplasia
     Route: 048
     Dates: start: 20200430
  10. MIRABEGRON [Concomitant]
     Active Substance: MIRABEGRON
     Indication: Benign prostatic hyperplasia
     Route: 048
     Dates: start: 20210225
  11. ACETAMINOPHEN\TRAMADOL HYDROCHLORIDE [Concomitant]
     Active Substance: ACETAMINOPHEN\TRAMADOL HYDROCHLORIDE
     Indication: Lumbar spinal stenosis
     Route: 048
     Dates: start: 20210415
  12. ASPIRIN [Concomitant]
     Active Substance: ASPIRIN
     Indication: Prophylaxis
     Route: 048
     Dates: start: 20210629
  13. GARENOXACIN MESYLATE [Concomitant]
     Active Substance: GARENOXACIN MESYLATE
     Indication: Prophylaxis
     Route: 048
     Dates: start: 20211019
  14. XARELTO [Concomitant]
     Active Substance: RIVAROXABAN
     Indication: Prophylaxis
     Route: 048
     Dates: start: 20211221
  15. XARELTO [Concomitant]
     Active Substance: RIVAROXABAN
     Route: 048
     Dates: start: 20211130, end: 20211220
  16. LANSOPRAZOLE [Concomitant]
     Active Substance: LANSOPRAZOLE
     Indication: Prophylaxis
     Route: 048
     Dates: start: 20120101
  17. LEVOFLOXACIN [Concomitant]
     Active Substance: LEVOFLOXACIN
     Indication: Prophylaxis
     Route: 048
     Dates: start: 20210713
  18. PREDNISOLONE [Concomitant]
     Active Substance: PREDNISOLONE
     Indication: Prophylaxis
     Route: 048
     Dates: start: 20210119
  19. FILGRASTIM [Concomitant]
     Active Substance: FILGRASTIM
     Indication: Neutropenia
     Route: 058
     Dates: start: 20211221, end: 20211221

REACTIONS (1)
  - Septic shock [Fatal]

NARRATIVE: CASE EVENT DATE: 20220112
